FAERS Safety Report 6796752-6 (Version None)
Quarter: 2010Q2

REPORT INFORMATION
  Report Type: 
  Country: None (occurrence: None)
  Receive Date: 20100622
  Receipt Date: 20100607
  Transmission Date: 20101027
  Serious: Yes (Hospitalization)
  Sender: FDA-Public Use
  Company Number: US-JNJFOC-20100108303

PATIENT
  Age: 70 Year
  Sex: Female
  Weight: 58.5 kg

DRUGS (6)
  1. DECITABINE (DECITABINE) LYOPHILIZED POWDER [Suspect]
     Indication: ACUTE MYELOID LEUKAEMIA
     Dosage: 20 MG/M2, INTRAVENOUS
     Route: 042
     Dates: start: 20090324
  2. VANCOMYCIN [Concomitant]
  3. ACYCLOVIR (ACICLOVIR) UNKNOWN [Concomitant]
  4. ZOFRAN (ONDANSETRON) UNKNOWN [Concomitant]
  5. SERTRALINE HCL [Concomitant]
  6. ACTONEL (RISEDRONATE SODIUM) UNKNOWN [Concomitant]

REACTIONS (23)
  - AORTIC VALVE SCLEROSIS [None]
  - BONE MARROW FAILURE [None]
  - CARDIAC VALVE VEGETATION [None]
  - CAROTID ARTERY STENOSIS [None]
  - CEREBRAL ISCHAEMIA [None]
  - CHILLS [None]
  - DEVICE RELATED INFECTION [None]
  - DIZZINESS [None]
  - DYSARTHRIA [None]
  - ENDOCARDITIS [None]
  - FALL [None]
  - FEBRILE NEUTROPENIA [None]
  - FIBROSIS [None]
  - INFLUENZA LIKE ILLNESS [None]
  - ISCHAEMIC STROKE [None]
  - MUSCLE SPASTICITY [None]
  - PAIN [None]
  - PYREXIA [None]
  - RIB FRACTURE [None]
  - SEPTIC EMBOLUS [None]
  - STAPHYLOCOCCAL BACTERAEMIA [None]
  - URINARY INCONTINENCE [None]
  - WHITE BLOOD CELL COUNT DECREASED [None]
